FAERS Safety Report 9101292 (Version 2)
Quarter: 2013Q1

REPORT INFORMATION
  Report Type: Report from Study
  Country: US (occurrence: US)
  Receive Date: 20130218
  Receipt Date: 20130322
  Transmission Date: 20140127
  Serious: Yes (Hospitalization)
  Sender: FDA-Public Use
  Company Number: US-ROCHE-1132928

PATIENT
  Age: 59 Year
  Sex: Male
  Weight: 70.37 kg

DRUGS (5)
  1. XELODA [Suspect]
     Indication: COLORECTAL CANCER METASTATIC
     Route: 048
     Dates: start: 201207
  2. XELODA [Suspect]
     Route: 048
     Dates: start: 20120807
  3. MAGNESIUM CITRATE [Concomitant]
     Dosage: 1 BOTTLE
     Route: 048
     Dates: start: 20120917, end: 20120917
  4. BEVACIZUMAB [Concomitant]
     Indication: COLORECTAL CANCER METASTATIC
     Route: 042
  5. OXALIPLATIN [Concomitant]
     Indication: COLON CANCER STAGE IV
     Route: 042
     Dates: start: 201301

REACTIONS (18)
  - Colostomy [Not Recovered/Not Resolved]
  - Colostomy closure [Recovered/Resolved]
  - Surgery [Unknown]
  - Muscle spasms [Not Recovered/Not Resolved]
  - Constipation [Recovered/Resolved]
  - Hypoaesthesia [Unknown]
  - Limb discomfort [Unknown]
  - Dry skin [Unknown]
  - Constipation [Recovered/Resolved]
  - Nausea [Recovered/Resolved]
  - Vomiting [Recovered/Resolved]
  - Abdominal pain upper [Recovered/Resolved]
  - Nausea [Recovered/Resolved]
  - Vomiting [Recovered/Resolved]
  - Palmar-plantar erythrodysaesthesia syndrome [Recovered/Resolved]
  - Weight decreased [Recovered/Resolved]
  - Asthenia [Recovered/Resolved]
  - Bronchitis [Unknown]
